FAERS Safety Report 4319812-8 (Version None)
Quarter: 2004Q1

REPORT INFORMATION
  Report Type: 
  Country: None (occurrence: None)
  Receive Date: 20040316
  Receipt Date: 20040303
  Transmission Date: 20041129
  Serious: Yes (Hospitalization, Other)
  Sender: FDA-Public Use
  Company Number: US_0403101377

PATIENT
  Age: 80 Year
  Sex: Female

DRUGS (2)
  1. HUMULIN 70/30 [Suspect]
     Indication: DIABETES MELLITUS
     Dates: start: 19900101
  2. CARDURA [Concomitant]

REACTIONS (4)
  - LOWER LIMB FRACTURE [None]
  - MALAISE [None]
  - MEMORY IMPAIRMENT [None]
  - VEIN DISORDER [None]
